FAERS Safety Report 5124226-7 (Version None)
Quarter: 2006Q4

REPORT INFORMATION
  Report Type: 
  Country: None (occurrence: None)
  Receive Date: 20061010
  Receipt Date: 20051122
  Transmission Date: 20070319
  Serious: Yes (Hospitalization, Other)
  Sender: FDA-Public Use
  Company Number: CL-BRISTOL-MYERS SQUIBB COMPANY-13189956

PATIENT
  Age: 72 Year
  Sex: Male

DRUGS (5)
  1. CISPLATIN [Suspect]
     Indication: GASTRIC CANCER
     Route: 041
     Dates: start: 20051031, end: 20051031
  2. FLUOROURACIL [Suspect]
     Indication: GASTRIC CANCER
     Route: 041
     Dates: start: 20051031, end: 20051105
  3. METOCLOPRAMIDE [Concomitant]
     Indication: HICCUPS
     Route: 048
     Dates: start: 20051110
  4. CHLORPROMAZINE [Concomitant]
     Indication: HICCUPS
     Route: 048
     Dates: start: 20051111
  5. TRAMADOL HCL [Concomitant]
     Indication: DYSPHAGIA
     Route: 048
     Dates: start: 20051108

REACTIONS (2)
  - FEBRILE NEUTROPENIA [None]
  - LOBAR PNEUMONIA [None]
